FAERS Safety Report 9643336 (Version 3)
Quarter: 2013Q4

REPORT INFORMATION
  Report Type: Spontaneous
  Country: US (occurrence: None)
  Receive Date: 20131022
  Receipt Date: 20131125
  Transmission Date: 20140711
  Serious: Yes (Other)
  Sender: FDA-Public Use
  Company Number: ADR-2013-01894

PATIENT
  Sex: Female

DRUGS (1)
  1. LIORESAL [Suspect]
     Indication: MUSCLE SPASTICITY
     Dosage: 6.4 MCG/DAY
     Dates: end: 20131016

REACTIONS (4)
  - Medical device pain [None]
  - Device malfunction [None]
  - Drug effect decreased [None]
  - Device dislocation [None]
